FAERS Safety Report 23622183 (Version 2)
Quarter: 2024Q1

REPORT INFORMATION
  Report Type: Spontaneous
  Country: US (occurrence: US)
  Receive Date: 20240312
  Receipt Date: 20240313
  Transmission Date: 20240410
  Serious: Yes (Hospitalization, Other)
  Sender: FDA-Public Use
  Company Number: US-MLMSERVICE-20240226-4847424-1

PATIENT
  Age: 29 Year
  Sex: Male

DRUGS (8)
  1. PEGFILGRASTIM [Suspect]
     Active Substance: PEGFILGRASTIM
     Indication: Prophylaxis
     Dosage: 1 DF
  2. PEGFILGRASTIM [Suspect]
     Active Substance: PEGFILGRASTIM
     Dosage: 1 DF, SECOND PEG-FILGRASTIM
  3. DOXORUBICIN [Concomitant]
     Active Substance: DOXORUBICIN
     Indication: Primary mediastinal large B-cell lymphoma
     Dosage: UNK (DA R-EPOCH), CYCLIC
  4. VINCRISTINE SULFATE [Concomitant]
     Active Substance: VINCRISTINE SULFATE
     Indication: Primary mediastinal large B-cell lymphoma
     Dosage: UNK (DA R-EPOCH), CYCLIC
  5. PREDNISONE [Concomitant]
     Active Substance: PREDNISONE
     Indication: Primary mediastinal large B-cell lymphoma
     Dosage: UNK (DA R-EPOCH), CYCLIC
  6. ETOPOSIDE [Concomitant]
     Active Substance: ETOPOSIDE
     Indication: Primary mediastinal large B-cell lymphoma
     Dosage: UNK (DA R-EPOCH), CYCLIC
  7. CYCLOPHOSPHAMIDE [Concomitant]
     Active Substance: CYCLOPHOSPHAMIDE
     Indication: Primary mediastinal large B-cell lymphoma
     Dosage: UNK (DA R-EPOCH), CYCLIC
  8. RITUXIMAB [Concomitant]
     Active Substance: RITUXIMAB
     Indication: Primary mediastinal large B-cell lymphoma
     Dosage: UNK (DA R-EPOCH), CYCLIC

REACTIONS (5)
  - Cerebral microhaemorrhage [Recovered/Resolved]
  - Fat embolism syndrome [Recovering/Resolving]
  - Atrial septal defect [Recovering/Resolving]
  - Bone marrow necrosis [Recovering/Resolving]
  - Cerebral ischaemia [Recovered/Resolved]
